FAERS Safety Report 7601330-2 (Version None)
Quarter: 2011Q3

REPORT INFORMATION
  Report Type: 
  Country: None (occurrence: None)
  Receive Date: 20110711
  Receipt Date: 20110707
  Transmission Date: 20111222
  Serious: Yes (Death)
  Sender: FDA-Public Use
  Company Number: US-ABBOTT-11P-163-0836700-00

PATIENT
  Sex: Male
  Weight: 67.192 kg

DRUGS (19)
  1. FINASTERIDE [Concomitant]
     Indication: ALOPECIA
     Dates: start: 20070201
  2. ISONIAZID [Concomitant]
     Indication: ANTIBIOTIC PROPHYLAXIS
     Dates: start: 20090819, end: 20100526
  3. LIDOCAINE [Concomitant]
     Indication: HAEMORRHOIDS
     Dates: start: 20100620, end: 20100627
  4. MELOXICAM [Concomitant]
     Indication: SPONDYLITIS
     Dates: start: 20090724, end: 20091216
  5. MINOCYCLINE HCL [Concomitant]
     Dates: start: 20091222, end: 20100601
  6. MINOCYCLINE HCL [Concomitant]
     Dates: start: 20100601
  7. ULTRACET [Concomitant]
     Indication: SPONDYLITIS
     Dates: start: 20090909
  8. KLONOPIN [Concomitant]
     Indication: ANXIETY
     Dates: start: 20100409, end: 20110110
  9. COLACE [Concomitant]
     Indication: HAEMORRHOIDS
     Dosage: STOOL SOFTENER
     Dates: start: 20100620, end: 20100720
  10. IBUPROFEN [Concomitant]
     Indication: CONTUSION
     Dates: start: 20100724, end: 20100901
  11. HUMIRA [Suspect]
     Indication: SPONDYLITIS
     Route: 058
     Dates: start: 20090923, end: 20110619
  12. VICODIN [Concomitant]
     Indication: LIGAMENT SPRAIN
     Dates: start: 20110315, end: 20110330
  13. IBUPROFEN [Concomitant]
     Indication: LIGAMENT SPRAIN
     Dates: start: 20110303
  14. VICODIN [Concomitant]
     Indication: HAEMORRHOIDS
     Dates: start: 20100620, end: 20100622
  15. MINOCYCLINE HCL [Concomitant]
     Indication: ACNE
     Dates: start: 19890101, end: 20091221
  16. TAMIFLU [Concomitant]
     Indication: INFLUENZA
     Dates: start: 20091123, end: 20091128
  17. KLONOPIN [Concomitant]
     Dates: start: 20110401
  18. CLOTRIMAZOLE [Concomitant]
     Indication: TINEA CRURIS
     Dates: start: 20100501, end: 20110201
  19. TRAZODONE HCL [Concomitant]
     Indication: INSOMNIA
     Dates: start: 20110111, end: 20110401

REACTIONS (3)
  - DEATH [None]
  - ANXIETY [None]
  - INSOMNIA [None]
